FAERS Safety Report 8283923-5 (Version None)
Quarter: 2012Q2

REPORT INFORMATION
  Report Type: 
  Country: None (occurrence: None)
  Receive Date: 20120413
  Receipt Date: 20120410
  Transmission Date: 20120825
  Serious: Yes (Death, Hospitalization)
  Sender: FDA-Public Use
  Company Number: GB-PFIZER INC-2012087878

PATIENT
  Age: 75 Year
  Sex: Male

DRUGS (1)
  1. IBUPROFEN [Suspect]
     Indication: OSTEOARTHRITIS
     Dosage: 300 MG, 3X/DAY
     Route: 048
     Dates: start: 20091103

REACTIONS (3)
  - RENAL FAILURE ACUTE [None]
  - URINARY TRACT INFECTION [None]
  - MULTI-ORGAN FAILURE [None]
